FAERS Safety Report 15141718 (Version 1)
Quarter: 2018Q3

REPORT INFORMATION
  Report Type: Spontaneous
  Country: US (occurrence: US)
  Receive Date: 20180618
  Receipt Date: 20180618
  Transmission Date: 20181010
  Serious: No
  Sender: FDA-Public Use
  Company Number: None

PATIENT
  Age: 55 Year
  Sex: Female

DRUGS (12)
  1. IRON [Concomitant]
     Active Substance: IRON
  2. VITAMIN D3 [Concomitant]
     Active Substance: CHOLECALCIFEROL
  3. CIMZIA [Suspect]
     Active Substance: CERTOLIZUMAB PEGOL
     Indication: PSORIASIS
     Route: 058
     Dates: start: 20180223
  4. LEXAPRO [Concomitant]
     Active Substance: ESCITALOPRAM OXALATE
  5. VITAMIN B12 [Concomitant]
     Active Substance: CYANOCOBALAMIN
  6. CLARITIN [Concomitant]
     Active Substance: LORATADINE
  7. GABAPENTIN. [Concomitant]
     Active Substance: GABAPENTIN
  8. OMEGA 3 [Concomitant]
     Active Substance: OMEGA-3 FATTY ACIDS
  9. LAMOTRIGINE. [Concomitant]
     Active Substance: LAMOTRIGINE
  10. OMEPRAZOLE. [Concomitant]
     Active Substance: OMEPRAZOLE
  11. LEVETIRACETA [Concomitant]
  12. CLONZEPAM [Concomitant]
     Active Substance: CLONAZEPAM

REACTIONS (1)
  - Injection site pain [None]
